FAERS Safety Report 6782572-5 (Version None)
Quarter: 2010Q2

REPORT INFORMATION
  Report Type: 
  Country: None (occurrence: None)
  Receive Date: 20100621
  Receipt Date: 20100606
  Transmission Date: 20101027
  Serious: Yes (Other)
  Sender: FDA-Public Use
  Company Number: FR-GENENTECH-303016

PATIENT
  Sex: Female
  Weight: 52 kg

DRUGS (4)
  1. XOLAIR [Suspect]
     Indication: ASTHMA
     Dosage: 600 MG, UNK
     Dates: start: 20100525
  2. AERIUS [Concomitant]
     Indication: DRUG USE FOR UNKNOWN INDICATION
  3. SINGULAIR [Concomitant]
     Indication: DRUG USE FOR UNKNOWN INDICATION
  4. SERETIDE [Concomitant]
     Indication: DRUG USE FOR UNKNOWN INDICATION

REACTIONS (13)
  - ANGIOEDEMA [None]
  - BACK DISORDER [None]
  - ERYTHEMA [None]
  - EYE OEDEMA [None]
  - FACE OEDEMA [None]
  - HEADACHE [None]
  - LOCALISED OEDEMA [None]
  - LYMPHADENOPATHY [None]
  - OEDEMA PERIPHERAL [None]
  - PRURITUS [None]
  - SCRATCH [None]
  - SKIN EXFOLIATION [None]
  - SKIN LESION [None]
